FAERS Safety Report 10484129 (Version 1)
Quarter: 2014Q3

REPORT INFORMATION
  Report Type: Spontaneous
  Country: US (occurrence: None)
  Receive Date: 20140929
  Receipt Date: 20140929
  Transmission Date: 20150326
  Serious: Yes (Other)
  Sender: FDA-Public Use
  Company Number: None

PATIENT
  Age: 52 Year
  Sex: Male
  Weight: 63.5 kg

DRUGS (1)
  1. CIPROFLOXACIN HCL 500 MG TADRL 2XDAY FOR 7 DAYS [Suspect]
     Active Substance: CIPROFLOXACIN HYDROCHLORIDE
     Indication: SALMONELLOSIS
     Dosage: 1 TABLET
     Route: 048
     Dates: start: 20140921, end: 20140923

REACTIONS (5)
  - Arthralgia [None]
  - Erythema nodosum [None]
  - Joint swelling [None]
  - Gait disturbance [None]
  - Pain in extremity [None]

NARRATIVE: CASE EVENT DATE: 20140921
